FAERS Safety Report 20808020 (Version 1)
Quarter: 2022Q2

REPORT INFORMATION
  Report Type: Spontaneous
  Country: US (occurrence: None)
  Receive Date: 20220509
  Receipt Date: 20220509
  Transmission Date: 20220721
  Serious: Yes (Other)
  Sender: FDA-Public Use
  Company Number: None

PATIENT
  Age: 31 Year
  Sex: Female
  Weight: 56.25 kg

DRUGS (6)
  1. .DELTA.8-TETRAHYDROCANNABINOL\HERBALS [Suspect]
     Active Substance: .DELTA.8-TETRAHYDROCANNABINOL\HERBALS
     Indication: Anxiety
     Route: 055
     Dates: start: 20220507, end: 20220507
  2. LAMICTAL [Concomitant]
     Active Substance: LAMOTRIGINE
  3. LITHIUM [Concomitant]
     Active Substance: LITHIUM
  4. VENLAFAXINE [Concomitant]
     Active Substance: VENLAFAXINE HYDROCHLORIDE
  5. LORAZEPAM [Concomitant]
     Active Substance: LORAZEPAM
  6. NP THYROID [Concomitant]
     Active Substance: LEVOTHYROXINE\LIOTHYRONINE

REACTIONS (15)
  - Nausea [None]
  - Vomiting [None]
  - Abdominal pain [None]
  - Diarrhoea [None]
  - Tremor [None]
  - Hyperhidrosis [None]
  - Urticaria [None]
  - Palpitations [None]
  - Paraesthesia [None]
  - Hot flush [None]
  - Feeling cold [None]
  - Depressed level of consciousness [None]
  - Disturbance in attention [None]
  - Lethargy [None]
  - Muscular weakness [None]

NARRATIVE: CASE EVENT DATE: 20220507
